FAERS Safety Report 25963139 (Version 4)
Quarter: 2025Q4

REPORT INFORMATION
  Report Type: Report from Study
  Country: US (occurrence: None)
  Receive Date: 20251027
  Receipt Date: 20251222
  Transmission Date: 20260118
  Serious: Yes (Hospitalization)
  Sender: UCB
  Company Number: US-UCBSA-2025037944

PATIENT
  Age: 4 Year

DRUGS (6)
  1. FENFLURAMINE [Suspect]
     Active Substance: FENFLURAMINE
     Indication: Partial seizures
     Dosage: 0.6 MILLILITER, 2X/DAY (BID)
  2. FENFLURAMINE [Suspect]
     Active Substance: FENFLURAMINE
     Indication: Off label use
     Dosage: 1.2 MILLILITER, 2X/DAY (BID)
  3. FENFLURAMINE [Suspect]
     Active Substance: FENFLURAMINE
     Dosage: 2.2 MILLILITER, 2X/DAY (BID)
  4. FENFLURAMINE [Suspect]
     Active Substance: FENFLURAMINE
     Dosage: 2.2 MILLILITER, 2X/DAY (BID)
  5. FENFLURAMINE [Suspect]
     Active Substance: FENFLURAMINE
     Dosage: 2.2 MILLILITER, 2X/DAY (BID)
  6. FENFLURAMINE [Suspect]
     Active Substance: FENFLURAMINE
     Dosage: 2.2 MILLILITER, 2X/DAY (BID)

REACTIONS (5)
  - Seizure [Not Recovered/Not Resolved]
  - Hospitalisation [Not Recovered/Not Resolved]
  - Vagal nerve stimulator implantation [Not Recovered/Not Resolved]
  - Gastrostomy [Not Recovered/Not Resolved]
  - Off label use [Unknown]
